FAERS Safety Report 4673334-3 (Version None)
Quarter: 2005Q2

REPORT INFORMATION
  Report Type: 
  Country: None (occurrence: None)
  Receive Date: 20050525
  Receipt Date: 20050516
  Transmission Date: 20051028
  Serious: Yes (Hospitalization)
  Sender: FDA-Public Use
  Company Number: SE-MERCK-0505SWE00012

PATIENT
  Age: 56 Year
  Sex: Male

DRUGS (6)
  1. VIOXX [Suspect]
     Indication: ARTHRALGIA
     Route: 048
     Dates: start: 20000114, end: 20041115
  2. SIMVASTATIN [Concomitant]
     Route: 065
  3. PROPIOMAZINE MALEATE [Concomitant]
     Route: 065
  4. ALLOPURINOL [Concomitant]
     Route: 065
  5. ATENOLOL [Concomitant]
     Route: 065
  6. ASPIRIN AND DIPYRIDAMOLE [Concomitant]
     Route: 065

REACTIONS (1)
  - CEREBRAL INFARCTION [None]
